FAERS Safety Report 12419835 (Version 1)
Quarter: 2016Q2

REPORT INFORMATION
  Report Type: Spontaneous
  Country: US (occurrence: US)
  Receive Date: 20160531
  Receipt Date: 20160531
  Transmission Date: 20160815
  Serious: No
  Sender: FDA-Public Use
  Company Number: US-JAZZ-2015-US-016476

PATIENT
  Sex: Female

DRUGS (1)
  1. XYREM [Suspect]
     Active Substance: SODIUM OXYBATE
     Indication: PRODUCT USED FOR UNKNOWN INDICATION
     Dosage: UNKNOWN DOSE
     Route: 048

REACTIONS (6)
  - Impaired driving ability [Unknown]
  - Hypoaesthesia [Unknown]
  - Speech disorder [Unknown]
  - Vomiting [Unknown]
  - Eye movement disorder [Unknown]
  - Dizziness [Unknown]
